FAERS Safety Report 24342759 (Version 3)
Quarter: 2024Q4

REPORT INFORMATION
  Report Type: Report from Study
  Country: US (occurrence: US)
  Receive Date: 20240920
  Receipt Date: 20241202
  Transmission Date: 20250115
  Serious: Yes (Hospitalization)
  Sender: ABBVIE
  Company Number: US-ABBVIE-5929864

PATIENT
  Age: 85 Year
  Sex: Female

DRUGS (3)
  1. VENCLEXTA [Suspect]
     Active Substance: VENETOCLAX
     Indication: Anaemia
     Dosage: LAST ADMIN DATE SEP 2024
     Route: 048
     Dates: start: 20240905
  2. VENCLEXTA [Suspect]
     Active Substance: VENETOCLAX
     Indication: Anaemia
     Dosage: STOP DATE 2024
     Route: 048
     Dates: start: 202408
  3. VENCLEXTA [Suspect]
     Active Substance: VENETOCLAX
     Indication: Anaemia
     Route: 048
     Dates: start: 20240915

REACTIONS (2)
  - Illness [Recovering/Resolving]
  - Hospitalisation [Unknown]

NARRATIVE: CASE EVENT DATE: 20240101
